FAERS Safety Report 6076855-4 (Version None)
Quarter: 2009Q1

REPORT INFORMATION
  Report Type: 
  Country: None (occurrence: None)
  Receive Date: 20090213
  Receipt Date: 20090202
  Transmission Date: 20090719
  Serious: Yes (Other)
  Sender: FDA-Public Use
  Company Number: US-ELI_LILLY_AND_COMPANY-US200902000765

PATIENT
  Sex: Male

DRUGS (9)
  1. ZYPREXA [Suspect]
  2. CLOZAPINE [Concomitant]
     Dosage: 12.5 MG, UNK
  3. CLOZAPINE [Concomitant]
     Dosage: 25 MG, UNK
  4. CLOZAPINE [Concomitant]
     Dosage: 50 MG, UNK
     Dates: start: 20081007, end: 20081015
  5. CLOZAPINE [Concomitant]
     Dosage: 100 MG, UNK
  6. TRAZODONE HCL [Concomitant]
     Dosage: UNK, UNK
     Dates: end: 20081104
  7. DEPAKOTE [Concomitant]
  8. LITHIUM CARBONATE [Concomitant]
     Dosage: 600 MG, UNK
     Dates: start: 20081021
  9. KEPPRA [Concomitant]

REACTIONS (1)
  - GRANULOCYTOPENIA [None]
